FAERS Safety Report 21246486 (Version 2)
Quarter: 2022Q4

REPORT INFORMATION
  Report Type: Spontaneous
  Country: DZ (occurrence: DZ)
  Receive Date: 20220824
  Receipt Date: 20221025
  Transmission Date: 20230113
  Serious: Yes (Other)
  Sender: FDA-Public Use
  Company Number: DZ-CELGENE-DZA-20200907788

PATIENT
  Sex: Female

DRUGS (4)
  1. REVLIMID [Suspect]
     Active Substance: LENALIDOMIDE
     Indication: Product used for unknown indication
     Dosage: DURATION TEXT : 6 CYCLES
     Route: 050
     Dates: start: 2018
  2. REVLIMID [Suspect]
     Active Substance: LENALIDOMIDE
     Dosage: FREQUENCY TEXT: NOT PROVIDED
     Route: 050
     Dates: end: 2019
  3. REVLIMID [Suspect]
     Active Substance: LENALIDOMIDE
     Dosage: FREQUENCY TEXT: NOT PROVIDED?DURATION TEXT : 6 CYCLES OF RVD
     Route: 050
     Dates: start: 20191117
  4. REVLIMID [Suspect]
     Active Substance: LENALIDOMIDE
     Dosage: FREQUENCY TEXT: NOT PROVIDED
     Route: 050
     Dates: end: 20200909

REACTIONS (2)
  - Abortion spontaneous [Unknown]
  - Exposure via body fluid [Unknown]
